FAERS Safety Report 20063418 (Version 1)
Quarter: 2021Q4

REPORT INFORMATION
  Report Type: Spontaneous
  Country: CN (occurrence: CN)
  Receive Date: 20211112
  Receipt Date: 20211112
  Transmission Date: 20220303
  Serious: Yes (Other)
  Sender: FDA-Public Use
  Company Number: CN-PFIZER INC-202101513521

PATIENT
  Age: 30 Year
  Sex: Female
  Weight: 57 kg

DRUGS (2)
  1. METHOTREXATE [Suspect]
     Active Substance: METHOTREXATE
     Indication: Ectopic pregnancy
     Dosage: 77.000 MG, ONCE A DAY
     Route: 030
     Dates: start: 20211019, end: 20211019
  2. METHOTREXATE [Suspect]
     Active Substance: METHOTREXATE
     Indication: Abortion

REACTIONS (4)
  - Facial paralysis [Recovering/Resolving]
  - Lacrimation disorder [Recovering/Resolving]
  - Abdominal pain [Recovering/Resolving]
  - Off label use [Unknown]

NARRATIVE: CASE EVENT DATE: 20211019
